FAERS Safety Report 12252435 (Version 1)
Quarter: 2016Q2

REPORT INFORMATION
  Report Type: Report from Study
  Country: DE (occurrence: DE)
  Receive Date: 20160411
  Receipt Date: 20160411
  Transmission Date: 20160815
  Serious: Yes (Hospitalization)
  Sender: FDA-Public Use
  Company Number: DE-TEVA-649347GER

PATIENT
  Age: 42 Year
  Sex: Female
  Weight: 63 kg

DRUGS (3)
  1. CARBOPLATIN. [Suspect]
     Active Substance: CARBOPLATIN
     Indication: BREAST CANCER FEMALE
     Dosage: LAST DOSE PRIOR TO SAE: 09-MAR-2016, TEMPORARILY STOPPED ON 16-MAR-2016, RESTARTED ON 24-MAR-2016
     Route: 042
     Dates: start: 20160224
  2. MYOCET [Suspect]
     Active Substance: DOXORUBICIN
     Indication: BREAST CANCER FEMALE
     Dosage: LAST DOSE PRIOR TO SAE: 09-MAR-2016, TEMPORARILY STOPPED ON 16-MAR-2016, RESTARTED ON 24-MAR-2016
     Route: 042
     Dates: start: 20160224
  3. PACLITAXEL. [Suspect]
     Active Substance: PACLITAXEL
     Indication: BREAST CANCER FEMALE
     Dosage: LAST DOSE PRIOR TO SAE: 09-MAR-2016, TEMPORARILY STOPPED ON 16-MAR-2016, RESTARTED ON 24-MAR-2016
     Route: 042
     Dates: start: 20160224

REACTIONS (1)
  - Parotitis [Recovered/Resolved]

NARRATIVE: CASE EVENT DATE: 20160311
